FAERS Safety Report 20685310 (Version 1)
Quarter: 2022Q2

REPORT INFORMATION
  Report Type: Report from Study
  Country: EG (occurrence: EG)
  Receive Date: 20220407
  Receipt Date: 20220407
  Transmission Date: 20220721
  Serious: Yes (Other)
  Sender: FDA-Public Use
  Company Number: EG-NOVARTISPH-NVSC2022EG079490

PATIENT
  Sex: Male

DRUGS (1)
  1. GILENYA [Suspect]
     Active Substance: FINGOLIMOD HYDROCHLORIDE
     Indication: Product used for unknown indication
     Dosage: 0.5 MG
     Route: 065

REACTIONS (4)
  - Multiple sclerosis [Recovering/Resolving]
  - Limb discomfort [Recovering/Resolving]
  - Abdominal pain lower [Recovering/Resolving]
  - Back pain [Recovering/Resolving]
